FAERS Safety Report 20214943 (Version 5)
Quarter: 2022Q2

REPORT INFORMATION
  Report Type: Report from Study
  Country: US (occurrence: US)
  Receive Date: 20211222
  Receipt Date: 20220620
  Transmission Date: 20220721
  Serious: No
  Sender: FDA-Public Use
  Company Number: US-NOVARTISTESTPH-NVSC2021US292489

PATIENT
  Sex: Female

DRUGS (1)
  1. ENTRESTO [Suspect]
     Active Substance: SACUBITRIL\VALSARTAN
     Indication: Product used for unknown indication
     Dosage: 1 DOSAGE FORM, BID
     Route: 048

REACTIONS (9)
  - Pain in extremity [Recovering/Resolving]
  - Gait disturbance [Unknown]
  - Frustration tolerance decreased [Unknown]
  - Decreased activity [Unknown]
  - Peripheral swelling [Unknown]
  - Skin discolouration [Unknown]
  - Procedural pain [Unknown]
  - Post procedural swelling [Unknown]
  - Gout [Unknown]
